FAERS Safety Report 8163670-0 (Version None)
Quarter: 2012Q1

REPORT INFORMATION
  Report Type: 
  Country: None (occurrence: None)
  Receive Date: 20120224
  Receipt Date: 20120210
  Transmission Date: 20120608
  Serious: Yes (Hospitalization)
  Sender: FDA-Public Use
  Company Number: GB-CELGENEUS-167-21880-12021313

PATIENT
  Sex: Female

DRUGS (3)
  1. REVLIMID [Suspect]
     Dosage: 25 MILLIGRAM
     Route: 048
     Dates: start: 20111108
  2. DEXAMETHASONE [Suspect]
     Route: 048
     Dates: start: 20111108
  3. CYCLOPHOSPHAMIDE [Suspect]
     Route: 048
     Dates: start: 20111108

REACTIONS (1)
  - ARTERIAL THROMBOSIS LIMB [None]
